FAERS Safety Report 7048363-5 (Version None)
Quarter: 2010Q4

REPORT INFORMATION
  Report Type: 
  Country: None (occurrence: None)
  Receive Date: 20101015
  Receipt Date: 20101001
  Transmission Date: 20110411
  Serious: Yes (Death)
  Sender: FDA-Public Use
  Company Number: US-PURDUE-USA-2010-0046459

PATIENT
  Sex: Female

DRUGS (1)
  1. OXYCONTIN [Suspect]
     Indication: PRODUCT USED FOR UNKNOWN INDICATION
     Dosage: 40 MG, TID
     Dates: start: 20070101

REACTIONS (5)
  - DEATH [None]
  - DRUG EFFECT DECREASED [None]
  - FEELING ABNORMAL [None]
  - INSOMNIA [None]
  - PAIN [None]
